FAERS Safety Report 4721543-7 (Version None)
Quarter: 2005Q3

REPORT INFORMATION
  Report Type: 
  Country: None (occurrence: None)
  Receive Date: 20050721
  Receipt Date: 20041112
  Transmission Date: 20060218
  Serious: Yes (Hospitalization)
  Sender: FDA-Public Use
  Company Number: US-BRISTOL-MYERS SQUIBB COMPANY-12765459

PATIENT
  Age: 64 Year
  Sex: Male

DRUGS (3)
  1. COUMADIN [Suspect]
     Indication: DEEP VEIN THROMBOSIS
     Dosage: BEGAN APR-01,STOP AFTER HOSP IN OCT-01,RESTARTED ON 03-NOV-01;5-10MG QD VS. 2.5MG X 3 + 5MG X 4/WEEK
     Route: 048
     Dates: start: 20010401
  2. COUMADIN [Suspect]
     Indication: PULMONARY EMBOLISM
     Dosage: BEGAN APR-01,STOP AFTER HOSP IN OCT-01,RESTARTED ON 03-NOV-01;5-10MG QD VS. 2.5MG X 3 + 5MG X 4/WEEK
     Route: 048
     Dates: start: 20010401
  3. HYTRIN [Concomitant]
     Dosage: CONSUMER TAKING FOR A FEW YEARS
     Route: 048

REACTIONS (1)
  - EPISTAXIS [None]
